FAERS Safety Report 6660479-1 (Version None)
Quarter: 2010Q1

REPORT INFORMATION
  Report Type: 
  Country: None (occurrence: None)
  Receive Date: 20100331
  Receipt Date: 20100324
  Transmission Date: 20100710
  Serious: Yes (Death, Hospitalization)
  Sender: FDA-Public Use
  Company Number: ZA-SANOFI-AVENTIS-2010SA011113

PATIENT
  Age: 62 Year
  Sex: Female

DRUGS (5)
  1. TAXOTERE [Suspect]
     Route: 041
     Dates: start: 20091118, end: 20091118
  2. TAXOTERE [Suspect]
     Route: 041
     Dates: start: 20100203, end: 20100203
  3. KYTRIL [Concomitant]
     Indication: PROPHYLAXIS
     Route: 041
     Dates: start: 20091118, end: 20100203
  4. BETANOID [Concomitant]
     Indication: PROPHYLAXIS
     Route: 041
     Dates: start: 20091118, end: 20100203
  5. CIPRO [Concomitant]

REACTIONS (3)
  - ANAEMIA [None]
  - FATIGUE [None]
  - HAEMOPTYSIS [None]
